FAERS Safety Report 7632452-8 (Version None)
Quarter: 2011Q3

REPORT INFORMATION
  Report Type: 
  Country: None (occurrence: None)
  Receive Date: 20110725
  Receipt Date: 20100921
  Transmission Date: 20111222
  Serious: No
  Sender: FDA-Public Use
  Company Number: US-BRISTOL-MYERS SQUIBB COMPANY-15283021

PATIENT
  Age: 79 Year
  Sex: Female

DRUGS (4)
  1. COUMADIN [Suspect]
     Indication: ATRIAL FIBRILLATION
     Route: 048
     Dates: start: 20100907
  2. LISINOPRIL [Concomitant]
  3. VITAMIN TAB [Concomitant]
  4. AMIODARONE HCL [Concomitant]

REACTIONS (5)
  - CHEST PAIN [None]
  - DIARRHOEA [None]
  - ABDOMINAL PAIN [None]
  - BLOOD PRESSURE INCREASED [None]
  - DISCOMFORT [None]
